FAERS Safety Report 14168686 (Version 2)
Quarter: 2018Q4

REPORT INFORMATION
  Report Type: Spontaneous
  Country: IN (occurrence: IN)
  Receive Date: 20171108
  Receipt Date: 20181025
  Transmission Date: 20190204
  Serious: Yes (Other)
  Sender: FDA-Public Use
  Company Number: IN-LUPIN PHARMACEUTICALS INC.-2017-03681

PATIENT
  Age: 47 Year
  Sex: Male

DRUGS (1)
  1. TOPIRAMATE TABLETS [Suspect]
     Active Substance: TOPIRAMATE
     Indication: MIGRAINE
     Dosage: 50 MG, QD
     Route: 065

REACTIONS (1)
  - Angle closure glaucoma [Recovered/Resolved]
